FAERS Safety Report 7016370-4 (Version None)
Quarter: 2010Q3

REPORT INFORMATION
  Report Type: 
  Country: None (occurrence: None)
  Receive Date: 20100927
  Receipt Date: 20100916
  Transmission Date: 20110219
  Serious: Yes (Hospitalization)
  Sender: FDA-Public Use
  Company Number: US-ASTRAZENECA-2010SE43572

PATIENT
  Age: 23562 Day
  Sex: Male

DRUGS (8)
  1. SYMBICORT [Suspect]
     Indication: CHRONIC OBSTRUCTIVE PULMONARY DISEASE
     Dosage: 160/4.5 UG
     Route: 055
     Dates: start: 20100401, end: 20100101
  2. AMLODIPINE [Concomitant]
  3. SIMVASTATIN [Concomitant]
  4. CLONIDINE [Concomitant]
  5. MEDICATION FOR DEPRESSION [Concomitant]
     Indication: DEPRESSION
  6. FENOFIBRATE [Concomitant]
  7. LISINOPRIL [Concomitant]
  8. COMBIVENT [Concomitant]
     Dosage: 90-18 QID

REACTIONS (3)
  - ARRHYTHMIA [None]
  - CARDIAC FAILURE [None]
  - RENAL FAILURE [None]
